FAERS Safety Report 19063670 (Version 1)
Quarter: 2021Q1

REPORT INFORMATION
  Report Type: Spontaneous
  Country: US (occurrence: US)
  Receive Date: 20210326
  Receipt Date: 20210326
  Transmission Date: 20210420
  Serious: Yes (Other)
  Sender: FDA-Public Use
  Company Number: US-BIOMARINAP-US-2021-135710

PATIENT
  Age: 21 Year
  Sex: Male
  Weight: 57 kg

DRUGS (3)
  1. PALYNZIQ [Suspect]
     Active Substance: PEGVALIASE-PQPZ
     Dosage: 20 MILLIGRAM, QD
     Route: 058
  2. RANITIDINE. [Concomitant]
     Active Substance: RANITIDINE
     Indication: PREMEDICATION
     Dosage: 300 MILLIGRAM
  3. CETIRIZINE [Concomitant]
     Active Substance: CETIRIZINE HYDROCHLORIDE
     Indication: PREMEDICATION
     Dosage: 10 MILLIGRAM

REACTIONS (12)
  - Anxiety [Unknown]
  - Dyspnoea [Not Recovered/Not Resolved]
  - Chest discomfort [Unknown]
  - Ulcer [Unknown]
  - Throat irritation [Unknown]
  - Injection site swelling [Unknown]
  - Hypersensitivity [Unknown]
  - Nausea [Unknown]
  - Hyperhidrosis [Unknown]
  - Panic attack [Unknown]
  - Decreased appetite [Unknown]
  - Post-traumatic stress disorder [Unknown]
